FAERS Safety Report 5577880-X (Version None)
Quarter: 2007Q4

REPORT INFORMATION
  Report Type: 
  Country: None (occurrence: None)
  Receive Date: 20071231
  Receipt Date: 20071218
  Transmission Date: 20080405
  Serious: Yes (Hospitalization)
  Sender: FDA-Public Use
  Company Number: US-KINGPHARMUSA00001-K200701642

PATIENT

DRUGS (4)
  1. AVINZA [Suspect]
     Indication: DRUG ABUSE
  2. MS CONTIN [Suspect]
     Indication: DRUG ABUSE
     Dosage: UNK, UNK
  3. KADIAN [Suspect]
     Indication: DRUG ABUSE
  4. OTC SLEEPING PILL [Concomitant]

REACTIONS (7)
  - DRUG ABUSER [None]
  - DRUG DIVERSION [None]
  - INCORRECT ROUTE OF DRUG ADMINISTRATION [None]
  - INFLAMMATION [None]
  - INJECTION SITE INFECTION [None]
  - LYMPHADENOPATHY MEDIASTINAL [None]
  - OPEN WOUND [None]
